FAERS Safety Report 5486267-X (Version None)
Quarter: 2007Q3

REPORT INFORMATION
  Report Type: 
  Country: None (occurrence: None)
  Receive Date: 20070917
  Receipt Date: 20060809
  Transmission Date: 20080115
  Serious: Yes (Hospitalization, Other)
  Sender: FDA-Public Use
  Company Number: S06-USA-02487-01

PATIENT
  Age: 41 Year
  Sex: Male

DRUGS (5)
  1. CELEXA [Suspect]
     Indication: DEPRESSION
     Dosage: 40 MG QD PO
     Route: 048
     Dates: start: 20060101, end: 20060601
  2. PEG-INTRON [Suspect]
     Indication: HEPATITIS C
     Dosage: 150 MCG QW SC
     Route: 058
     Dates: start: 20060128, end: 20060620
  3. PEG-INTRON [Suspect]
     Indication: HEPATITIS C
     Dosage: 150 MCG QW SC
     Route: 058
     Dates: start: 20060710
  4. RIBASPHERE [Suspect]
     Indication: HEPATITIS C
     Dosage: 1200 MG QD PO
     Route: 048
     Dates: start: 20060128, end: 20060620
  5. RIBASPHERE [Suspect]
     Indication: HEPATITIS C
     Dosage: 1200 MG QD PO
     Route: 048
     Dates: start: 20060710

REACTIONS (4)
  - DEPRESSION [None]
  - FRUSTRATION [None]
  - INSOMNIA [None]
  - SUICIDAL IDEATION [None]
